FAERS Safety Report 4412069-9 (Version None)
Quarter: 2004Q3

REPORT INFORMATION
  Report Type: 
  Country: None (occurrence: None)
  Receive Date: 20040730
  Receipt Date: 20040602
  Transmission Date: 20050211
  Serious: Yes (Hospitalization)
  Sender: FDA-Public Use
  Company Number: JP-BRISTOL-MYERS SQUIBB COMPANY-12607503

PATIENT
  Age: 77 Year
  Sex: Female

DRUGS (5)
  1. PRAVASTATIN SODIUM [Suspect]
     Indication: HYPERLIPIDAEMIA
     Route: 048
     Dates: start: 20040401, end: 20040601
  2. GLYBURIDE [Suspect]
     Indication: DIABETES MELLITUS
     Route: 048
     Dates: start: 20040401
  3. CONIEL [Suspect]
     Indication: HYPERTENSION
  4. GLUCOBAY [Concomitant]
     Indication: DIABETES MELLITUS
     Dates: start: 20040630
  5. PLETAL [Concomitant]
     Dates: start: 20040630, end: 20040420

REACTIONS (1)
  - PLATELET COUNT DECREASED [None]
